FAERS Safety Report 5668632-0 (Version None)
Quarter: 2008Q1

REPORT INFORMATION
  Report Type: 
  Country: None (occurrence: None)
  Receive Date: 20080312
  Receipt Date: 20080224
  Transmission Date: 20080703
  Serious: Yes (Other)
  Sender: FDA-Public Use
  Company Number: ENTC2008-0054

PATIENT
  Sex: Male

DRUGS (2)
  1. STALEVO (TABLET) (LEVODORA, CARBIDOPA, ENTACAPONE) [Suspect]
     Dosage: ORAL
     Route: 048
  2. ANTIHYPERTENSIVES DRUGS [Suspect]
     Indication: BLOOD PRESSURE

REACTIONS (2)
  - BLOOD PRESSURE FLUCTUATION [None]
  - OEDEMA [None]
